FAERS Safety Report 8925400 (Version 1)
Quarter: 2012Q4

REPORT INFORMATION
  Report Type: Spontaneous
  Country: US (occurrence: None)
  Receive Date: 20121126
  Receipt Date: 20121126
  Transmission Date: 20130627
  Serious: Yes (Other)
  Sender: FDA-Public Use
  Company Number: None

PATIENT
  Age: 27 Year
  Sex: Female
  Weight: 72.58 kg

DRUGS (1)
  1. ESCITOLOPRAM NORMAL [Suspect]
     Indication: DEPRESSION
     Route: 048
     Dates: start: 20110301, end: 20121101

REACTIONS (9)
  - Dry mouth [None]
  - Abnormal dreams [None]
  - Insomnia [None]
  - Convulsion [None]
  - Drug withdrawal syndrome [None]
  - Hypoaesthesia [None]
  - Paraesthesia [None]
  - Dizziness postural [None]
  - Vertigo [None]
